FAERS Safety Report 17207762 (Version 1)
Quarter: 2019Q4

REPORT INFORMATION
  Report Type: Spontaneous
  Country: US (occurrence: US)
  Receive Date: 20191227
  Receipt Date: 20191227
  Transmission Date: 20200122
  Serious: No
  Sender: FDA-Public Use
  Company Number: US-GUERBET-US-20190010

PATIENT
  Age: 57 Year
  Sex: Female
  Weight: 140.6 kg

DRUGS (1)
  1. DOTAREM [Suspect]
     Active Substance: GADOTERATE MEGLUMINE
     Indication: MAGNETIC RESONANCE IMAGING BRAIN
     Route: 042
     Dates: start: 20190104, end: 20190104

REACTIONS (1)
  - Hostility [Recovered/Resolved]

NARRATIVE: CASE EVENT DATE: 20190104
